FAERS Safety Report 5166959-2 (Version None)
Quarter: 2006Q4

REPORT INFORMATION
  Report Type: 
  Country: None (occurrence: None)
  Receive Date: 20061207
  Receipt Date: 20051003
  Transmission Date: 20070319
  Serious: Yes (Hospitalization)
  Sender: FDA-Public Use
  Company Number: GB-SANOFI-SYNTHELABO-F01200502019

PATIENT
  Sex: Male

DRUGS (11)
  1. BEVACIZUMAB [Suspect]
     Route: 042
  2. LEUCOVORIN CALCIUM [Suspect]
     Dosage: GIVEN ON DAYS 1 AND 2 EACH CYCLE
     Route: 042
  3. FLUOROURACIL [Suspect]
     Route: 040
  4. FLUOROURACIL [Suspect]
     Route: 042
  5. CODEINE [Concomitant]
     Dosage: UNK
     Route: 065
     Dates: start: 20050915, end: 20050919
  6. ACETAMINOPHEN [Concomitant]
     Dosage: UNK
     Route: 065
     Dates: start: 20050819
  7. WARFARIN SODIUM [Concomitant]
     Dates: start: 20050719, end: 20050823
  8. CLEXANE [Suspect]
     Dosage: UNK
     Route: 058
     Dates: start: 20050801, end: 20050814
  9. CLEXANE [Suspect]
     Route: 058
     Dates: start: 20050823
  10. OXALIPLATIN [Suspect]
     Indication: COLON CANCER
     Route: 042
     Dates: start: 20050720, end: 20050720
  11. MORPHINE [Concomitant]
     Dosage: UNK
     Route: 065
     Dates: start: 20050919, end: 20050919

REACTIONS (7)
  - LUNG CONSOLIDATION [None]
  - LUNG DISORDER [None]
  - LYMPHADENOPATHY [None]
  - MUSCULOSKELETAL PAIN [None]
  - NECK PAIN [None]
  - PULMONARY EMBOLISM [None]
  - SUBCLAVIAN VEIN THROMBOSIS [None]
